FAERS Safety Report 6247621-1 (Version None)
Quarter: 2009Q2

REPORT INFORMATION
  Report Type: 
  Country: None (occurrence: None)
  Receive Date: 20090626
  Receipt Date: 20090615
  Transmission Date: 20091009
  Serious: Yes (Death, Other)
  Sender: FDA-Public Use
  Company Number: US-PFIZER INC-2009222082

PATIENT
  Age: 28 Year
  Sex: Male

DRUGS (5)
  1. ALPRAZOLAM [Suspect]
  2. DIAZEPAM [Suspect]
  3. OXAZEPAM [Suspect]
  4. METHADONE [Suspect]
  5. NORDAZEPAM [Suspect]

REACTIONS (4)
  - CARDIOMEGALY [None]
  - DRUG TOXICITY [None]
  - PNEUMOCONIOSIS [None]
  - PULMONARY CONGESTION [None]
